FAERS Safety Report 8617003-3 (Version None)
Quarter: 2012Q3

REPORT INFORMATION
  Report Type: 
  Country: None (occurrence: None)
  Receive Date: 20120823
  Receipt Date: 20120814
  Transmission Date: 20120928
  Serious: No
  Sender: FDA-Public Use
  Company Number: US-009507513-1208USA007103

PATIENT

DRUGS (6)
  1. VICODIN [Concomitant]
  2. NUVARING [Suspect]
     Indication: CONTRACEPTION
     Dosage: 1 DF, QM
     Route: 067
     Dates: start: 20120601
  3. PROBIOTICA [Concomitant]
  4. IBUPROFEN [Concomitant]
  5. KLONOPIN [Concomitant]
  6. PERCOCET [Concomitant]

REACTIONS (2)
  - DEVICE EXPULSION [None]
  - WITHDRAWAL BLEED [None]
